FAERS Safety Report 14619044 (Version 1)
Quarter: 2018Q1

REPORT INFORMATION
  Report Type: Spontaneous
  Country: GB (occurrence: GB)
  Receive Date: 20180309
  Receipt Date: 20180309
  Transmission Date: 20180509
  Serious: Yes (Life-Threatening)
  Sender: FDA-Public Use
  Company Number: GB-ASTRAZENECA-2018SE26919

PATIENT
  Age: 65 Year
  Sex: Male

DRUGS (13)
  1. DEGARELIX [Concomitant]
     Active Substance: DEGARELIX
  2. METOCLOPRAMIDE. [Concomitant]
     Active Substance: METOCLOPRAMIDE
  3. METHYLDOPA. [Concomitant]
     Active Substance: METHYLDOPA
  4. SERETIDE [Concomitant]
     Active Substance: FLUTICASONE PROPIONATE\SALMETEROL XINAFOATE
  5. SIMVASTATIN. [Concomitant]
     Active Substance: SIMVASTATIN
  6. HERBAL NOS [Concomitant]
     Active Substance: HERBALS
  7. BICALUTAMIDE. [Suspect]
     Active Substance: BICALUTAMIDE
     Indication: PROSTATE CANCER
     Dosage: 50.0MG UNKNOWN
     Route: 048
  8. XARELTO [Suspect]
     Active Substance: RIVAROXABAN
     Indication: PULMONARY EMBOLISM
     Dosage: 10.0MG UNKNOWN
     Route: 048
  9. TIOTROPIUM [Concomitant]
     Active Substance: TIOTROPIUM
  10. DOCUSATE [Concomitant]
     Active Substance: DOCUSATE
  11. FUROSEMIDE. [Concomitant]
     Active Substance: FUROSEMIDE
  12. ZEROBASE [Concomitant]
  13. LAXIDO [Concomitant]
     Active Substance: POLYETHYLENE GLYCOL 3350\POTASSIUM CHLORIDE\SODIUM BICARBONATE\SODIUM CHLORIDE

REACTIONS (2)
  - Drug interaction [Not Recovered/Not Resolved]
  - Pulmonary embolism [Not Recovered/Not Resolved]
